FAERS Safety Report 13339777 (Version 2)
Quarter: 2017Q2

REPORT INFORMATION
  Report Type: Report from Study
  Country: US (occurrence: US)
  Receive Date: 20170315
  Receipt Date: 20170417
  Transmission Date: 20170830
  Serious: No
  Sender: FDA-Public Use
  Company Number: US-009507513-1703USA000432

PATIENT
  Sex: Male

DRUGS (6)
  1. PRAVASTATIN. [Concomitant]
     Active Substance: PRAVASTATIN
  2. KEPPRA [Concomitant]
     Active Substance: LEVETIRACETAM
  3. SYNTHROID [Concomitant]
     Active Substance: LEVOTHYROXINE SODIUM
  4. PRINIVIL [Concomitant]
     Active Substance: LISINOPRIL
     Route: 048
  5. ASPIRIN. [Concomitant]
     Active Substance: ASPIRIN
     Route: 048
  6. PEMBROLIZUMAB. [Suspect]
     Active Substance: PEMBROLIZUMAB
     Indication: METASTATIC MALIGNANT MELANOMA
     Dosage: ^50^ (UNIT UNKNOWN), Q3W
     Route: 042
     Dates: start: 20160823

REACTIONS (7)
  - Paraesthesia oral [Not Recovered/Not Resolved]
  - Fatigue [Not Recovered/Not Resolved]
  - Feeling abnormal [Not Recovered/Not Resolved]
  - Aphthous ulcer [Recovered/Resolved]
  - Pruritus [Not Recovered/Not Resolved]
  - Headache [Recovered/Resolved]
  - Blood thyroid stimulating hormone decreased [Unknown]

NARRATIVE: CASE EVENT DATE: 2016
